FAERS Safety Report 7207863-5 (Version None)
Quarter: 2010Q4

REPORT INFORMATION
  Report Type: 
  Country: None (occurrence: None)
  Receive Date: 20101217
  Receipt Date: 20101210
  Transmission Date: 20110411
  Serious: Yes (Hospitalization)
  Sender: FDA-Public Use
  Company Number: 777760

PATIENT
  Age: 64 Year
  Sex: Female

DRUGS (6)
  1. OXALIPLATIN [Suspect]
     Indication: COLORECTAL CANCER
     Dosage: 240 MG MILLIGRAM(S), INTRAVENOUS
     Route: 042
     Dates: start: 20100722
  2. CAPECITABINE [Concomitant]
  3. DEXAMETHASONE [Concomitant]
  4. LEVOTHYROXINE [Concomitant]
  5. OMEPRAZOLE [Concomitant]
  6. ONDANSETRON [Concomitant]

REACTIONS (4)
  - DYSPHONIA [None]
  - MUSCLE TWITCHING [None]
  - THROAT IRRITATION [None]
  - TREMOR [None]
